FAERS Safety Report 6912579-6 (Version None)
Quarter: 2010Q3

REPORT INFORMATION
  Report Type: 
  Country: None (occurrence: None)
  Receive Date: 20100806
  Receipt Date: 20080829
  Transmission Date: 20110219
  Serious: No
  Sender: FDA-Public Use
  Company Number: US-PFIZER INC-2008064521

PATIENT
  Sex: Female
  Weight: 51.818 kg

DRUGS (1)
  1. DETROL LA [Suspect]
     Indication: POLLAKIURIA
     Route: 048
     Dates: start: 20080719, end: 20080721

REACTIONS (2)
  - DIZZINESS [None]
  - VISION BLURRED [None]
